FAERS Safety Report 8576309-7 (Version None)
Quarter: 2012Q3

REPORT INFORMATION
  Report Type: 
  Country: None (occurrence: None)
  Receive Date: 20120807
  Receipt Date: 20120802
  Transmission Date: 20120928
  Serious: Yes (Hospitalization)
  Sender: FDA-Public Use
  Company Number: US-GILEAD-2012-0054893

PATIENT
  Sex: Female

DRUGS (3)
  1. TYVASO [Concomitant]
  2. LETAIRIS [Suspect]
     Indication: HEART DISEASE CONGENITAL
  3. LETAIRIS [Suspect]
     Indication: PULMONARY HYPERTENSION
     Dosage: 5 MG, UNK
     Route: 048
     Dates: start: 20111019

REACTIONS (8)
  - UPPER RESPIRATORY TRACT INFECTION [None]
  - LAZINESS [None]
  - NASOPHARYNGITIS [None]
  - THROAT IRRITATION [None]
  - COUGH [None]
  - UNEVALUABLE EVENT [None]
  - MALAISE [None]
  - MOVEMENT DISORDER [None]
